FAERS Safety Report 9685722 (Version 2)
Quarter: 2013Q4

REPORT INFORMATION
  Report Type: Spontaneous
  Country: JP (occurrence: JP)
  Receive Date: 20131113
  Receipt Date: 20131113
  Transmission Date: 20140711
  Serious: Yes (Death)
  Sender: FDA-Public Use
  Company Number: JP-BAYER-2013-125819

PATIENT
  Age: 86 Year
  Sex: Female
  Weight: 34 kg

DRUGS (9)
  1. XARELTO [Suspect]
     Indication: ATRIAL FIBRILLATION
     Dosage: 10 MG, QD
     Route: 048
     Dates: start: 20130525, end: 20130919
  2. XARELTO [Interacting]
     Indication: CEREBROVASCULAR ACCIDENT PROPHYLAXIS
  3. ASPIRIN \^BAYER\^ (JP ASPIRIN) [Interacting]
     Indication: MYOCARDIAL INFARCTION
     Dosage: 100 MG, QD
     Route: 048
     Dates: start: 20130525, end: 20130928
  4. MAINTATE [Concomitant]
     Dosage: 2.5 MG, QD
     Route: 048
     Dates: start: 20130525
  5. RENIVACE [Concomitant]
     Dosage: 2.5 MG, QD
     Route: 048
     Dates: start: 20130525
  6. LANSOPRAZOLE [Concomitant]
     Dosage: 15 MG, QD
     Route: 048
     Dates: start: 20130525
  7. ALDACTONE A [Concomitant]
     Dosage: 25 MG, QD
     Route: 048
     Dates: start: 20130525
  8. SENNOSIDE [Concomitant]
     Dosage: .5 G, QD
     Route: 048
     Dates: start: 20130525
  9. BUP-4 [Concomitant]
     Dosage: 20 MG, QD
     Route: 048
     Dates: start: 20130525

REACTIONS (2)
  - Lower gastrointestinal haemorrhage [Fatal]
  - Drug interaction [None]
